FAERS Safety Report 24621162 (Version 3)
Quarter: 2025Q2

REPORT INFORMATION
  Report Type: Other
  Country: US (occurrence: US)
  Receive Date: 20241114
  Receipt Date: 20250428
  Transmission Date: 20250717
  Serious: No
  Sender: TRAVERE THERAPEUTICS
  Company Number: US-TRAVERE-2024TVT01163

PATIENT
  Age: 52 Year
  Sex: Male

DRUGS (2)
  1. FILSPARI [Suspect]
     Active Substance: SPARSENTAN
     Indication: Haematuria
     Route: 048
     Dates: start: 202410
  2. FILSPARI [Suspect]
     Active Substance: SPARSENTAN
     Indication: Chronic kidney disease
     Dosage: LOT NUMBER: 1976071 AND EXPIRY DATE: 31-MAY-2026
     Route: 048
     Dates: start: 202411

REACTIONS (6)
  - Fatigue [None]
  - Product use in unapproved indication [Unknown]
  - Dry mouth [Unknown]
  - Ageusia [None]
  - Lacrimation increased [Unknown]
  - Increased need for sleep [Unknown]
